FAERS Safety Report 15566974 (Version 1)
Quarter: 2018Q4

REPORT INFORMATION
  Report Type: Spontaneous
  Country: FR (occurrence: FR)
  Receive Date: 20181030
  Receipt Date: 20181030
  Transmission Date: 20190205
  Serious: Yes (Hospitalization)
  Sender: FDA-Public Use
  Company Number: FR-JNJFOC-20181040422

PATIENT
  Age: 71 Year
  Sex: Female
  Weight: 93 kg

DRUGS (4)
  1. COLCHIMAX (COLCHICINE\DICYCLOMINE HYDROCHLORIDE) [Concomitant]
     Active Substance: COLCHICINE\DICYCLOMINE HYDROCHLORIDE
     Indication: VASCULITIS
     Route: 048
     Dates: start: 20180329, end: 20180516
  2. PYOSTACINE [Concomitant]
     Active Substance: PRISTINAMYCIN
     Indication: VASCULITIS
     Route: 048
     Dates: start: 20180504, end: 20180511
  3. IXPRIM [Suspect]
     Active Substance: ACETAMINOPHEN\TRAMADOL HYDROCHLORIDE
     Indication: PAIN
     Route: 048
     Dates: start: 20180511, end: 20180516
  4. AUGMENTIN [Suspect]
     Active Substance: AMOXICILLIN\CLAVULANATE POTASSIUM
     Indication: VASCULAR PURPURA
     Route: 048
     Dates: start: 20180511, end: 20180514

REACTIONS (2)
  - Rash [Recovered/Resolved]
  - Dermatitis exfoliative generalised [Recovered/Resolved]

NARRATIVE: CASE EVENT DATE: 20180514
